FAERS Safety Report 20831830 (Version 1)
Quarter: 2022Q2

REPORT INFORMATION
  Report Type: Spontaneous
  Country: CZ (occurrence: CZ)
  Receive Date: 20220516
  Receipt Date: 20220516
  Transmission Date: 20220721
  Serious: Yes (Hospitalization, Other)
  Sender: FDA-Public Use
  Company Number: CZ-PFIZER INC-202200621269

PATIENT
  Age: 82 Year
  Sex: Male

DRUGS (9)
  1. RITUXIMAB [Suspect]
     Active Substance: RITUXIMAB
     Indication: Diffuse large B-cell lymphoma
     Dosage: UNK
     Route: 041
  2. DOXORUBICIN [Suspect]
     Active Substance: DOXORUBICIN
     Indication: Diffuse large B-cell lymphoma
     Dosage: REGIMEN #1: 25 MG/M2, EVERY 3 WEEKS
     Route: 042
     Dates: start: 20220331, end: 20220331
  3. EPCORITAMAB [Suspect]
     Active Substance: EPCORITAMAB
     Indication: Diffuse large B-cell lymphoma
     Dosage: REGIMEN # 2: INTERMEDIATE DOSE: 0.8 MG, SINGLE
     Route: 058
     Dates: start: 20220407, end: 20220407
  4. EPCORITAMAB [Suspect]
     Active Substance: EPCORITAMAB
     Dosage: REGIMEN # 1: PRIMING DOSE: 0.16 MG, SINGLE
     Route: 058
     Dates: start: 20220331, end: 20220331
  5. PREDNISONE [Suspect]
     Active Substance: PREDNISONE
     Indication: Diffuse large B-cell lymphoma
     Dosage: UNK
     Route: 065
  6. VINCRISTINE [Suspect]
     Active Substance: VINCRISTINE
     Indication: Diffuse large B-cell lymphoma
     Dosage: REGIMEN #1: 1 MG/M2, EVERY 3 WEEKS
     Route: 042
     Dates: start: 20220331, end: 20220331
  7. CYCLOPHOSPHAMIDE [Suspect]
     Active Substance: CYCLOPHOSPHAMIDE
     Indication: Diffuse large B-cell lymphoma
     Dosage: REGIMEN #1: 400 MG/M2, EVERY 3 WEEKS
     Route: 042
     Dates: start: 20220331, end: 20220331
  8. PARALEN (CZECH REPUBLIC) [Concomitant]
     Dosage: 1000 UNK
     Route: 048
     Dates: start: 20220407, end: 20220407
  9. ZYRTEC [Concomitant]
     Active Substance: CETIRIZINE HYDROCHLORIDE
     Dosage: 10 MG
     Route: 048
     Dates: start: 20220407, end: 20220407

REACTIONS (2)
  - Cytokine release syndrome [Not Recovered/Not Resolved]
  - Diabetic metabolic decompensation [Not Recovered/Not Resolved]

NARRATIVE: CASE EVENT DATE: 20220415
